FAERS Safety Report 10243788 (Version 2)
Quarter: 2014Q2

REPORT INFORMATION
  Report Type: Spontaneous
  Country: US (occurrence: US)
  Receive Date: 20140618
  Receipt Date: 20140624
  Transmission Date: 20141212
  Serious: Yes (Other)
  Sender: FDA-Public Use
  Company Number: US-PFIZER INC-2014163941

PATIENT
  Age: 89 Year
  Sex: Female
  Weight: 55.33 kg

DRUGS (1)
  1. AROMASIN [Suspect]
     Indication: BREAST CANCER FEMALE
     Dosage: 25 MG, DAILY

REACTIONS (5)
  - Eye haemorrhage [Unknown]
  - Hearing impaired [Unknown]
  - Diarrhoea [Unknown]
  - Skin discolouration [Unknown]
  - Arthritis [Unknown]
